FAERS Safety Report 7224107-9 (Version None)
Quarter: 2011Q1

REPORT INFORMATION
  Report Type: 
  Country: None (occurrence: None)
  Receive Date: 20110113
  Receipt Date: 20110111
  Transmission Date: 20110831
  Serious: Yes (Death, Other)
  Sender: FDA-Public Use
  Company Number: US-ASTRAZENECA-2007UW01263

PATIENT
  Age: 17109 Day
  Sex: Female
  Weight: 103 kg

DRUGS (14)
  1. SEROQUEL [Suspect]
     Dosage: 25 MG TO 600 MG HS
     Route: 048
     Dates: start: 20010918
  2. ABILIFY [Concomitant]
     Dosage: 5 MG FOR 5 DAYS THEN TWO AM
     Dates: start: 20041019
  3. SEROQUEL [Suspect]
     Dosage: 25 MG TO 600 MG HS
     Route: 048
     Dates: start: 20010918
  4. KLONOPIN [Concomitant]
     Dates: end: 20010918
  5. SEROQUEL [Suspect]
     Indication: HALLUCINATION, AUDITORY
     Route: 048
     Dates: start: 20010918, end: 20050228
  6. TYLENOL-500 [Concomitant]
     Dosage: 500 MG TWO TID PRN
     Dates: start: 20041019
  7. ABILIFY [Concomitant]
     Dates: start: 20040101, end: 20070101
  8. PAXIL [Concomitant]
     Dates: start: 20041019
  9. SEROQUEL [Suspect]
     Indication: DEPRESSION
     Route: 048
     Dates: start: 20010918, end: 20050228
  10. RISPERDAL [Concomitant]
  11. AMBIEN [Concomitant]
     Dates: start: 20041019
  12. CELEBREX [Concomitant]
     Dates: start: 20041019
  13. ELAVIL [Concomitant]
     Dosage: 50 MG-75 MG
     Dates: start: 20010918
  14. VIOXX [Concomitant]
     Dates: end: 20010918

REACTIONS (3)
  - DIABETIC KETOACIDOSIS [None]
  - DEATH [None]
  - TYPE 2 DIABETES MELLITUS [None]
